FAERS Safety Report 9694279 (Version 1)
Quarter: 2013Q4

REPORT INFORMATION
  Report Type: Spontaneous
  Country: US (occurrence: US)
  Receive Date: 20131118
  Receipt Date: 20131118
  Transmission Date: 20140711
  Serious: No
  Sender: FDA-Public Use
  Company Number: US-PFIZER INC-2013324545

PATIENT
  Age: 68 Year
  Sex: Male
  Weight: 74.83 kg

DRUGS (3)
  1. LIPITOR [Suspect]
     Indication: BLOOD CHOLESTEROL INCREASED
     Dosage: 20 MG, 1X/DAY
     Route: 048
     Dates: end: 2012
  2. LIPITOR [Suspect]
     Dosage: 20 MG, 1X/DAY
     Route: 048
     Dates: start: 2013
  3. VITAMIN B12 [Concomitant]
     Dosage: UNK

REACTIONS (2)
  - Low density lipoprotein increased [Unknown]
  - Incorrect dose administered [Unknown]
